FAERS Safety Report 18353207 (Version 1)
Quarter: 2020Q4

REPORT INFORMATION
  Report Type: Report from Study
  Country: US (occurrence: US)
  Receive Date: 20201007
  Receipt Date: 20201007
  Transmission Date: 20210114
  Serious: Yes (Hospitalization)
  Sender: FDA-Public Use
  Company Number: US-B.I. PHARMACEUTICALS,INC./RIDGEFIELD-2020-BI-046279

PATIENT
  Age: 71 Year
  Sex: Female

DRUGS (1)
  1. OFEV [Suspect]
     Active Substance: NINTEDANIB
     Indication: IDIOPATHIC PULMONARY FIBROSIS
     Dosage: 150MG BY MOUTH TWICE DAILY
     Route: 048
     Dates: start: 20200818, end: 20200920

REACTIONS (7)
  - Abdominal pain upper [Recovered/Resolved]
  - Interstitial lung disease [Not Recovered/Not Resolved]
  - Epistaxis [Recovered/Resolved]
  - Chest pain [Recovered/Resolved]
  - Headache [Recovered/Resolved]
  - Rectal haemorrhage [Recovered/Resolved]
  - Haemorrhoids [Unknown]

NARRATIVE: CASE EVENT DATE: 20200920
